FAERS Safety Report 22266933 (Version 1)
Quarter: 2023Q2

REPORT INFORMATION
  Report Type: Spontaneous
  Country: US (occurrence: None)
  Receive Date: 20230427
  Receipt Date: 20230427
  Transmission Date: 20230721
  Serious: No
  Sender: FDA-Public Use
  Company Number: None

PATIENT
  Age: 67 Year
  Sex: Male

DRUGS (1)
  1. XGEVA [Suspect]
     Active Substance: DENOSUMAB
     Dosage: 120MG OTHER  SUBCUTANEOUS
     Route: 058

REACTIONS (1)
  - Hospice care [None]

NARRATIVE: CASE EVENT DATE: 20230427
